FAERS Safety Report 11704149 (Version 2)
Quarter: 2015Q4

REPORT INFORMATION
  Report Type: Report from Study
  Country: DE (occurrence: DE)
  Receive Date: 20151106
  Receipt Date: 20151217
  Transmission Date: 20160304
  Serious: Yes (Hospitalization)
  Sender: FDA-Public Use
  Company Number: PHHO2015DE018572

PATIENT
  Age: 59 Year
  Sex: Male
  Weight: 89 kg

DRUGS (9)
  1. RAMILICH [Concomitant]
     Active Substance: RAMIPRIL
     Indication: HYPERTENSION
     Dosage: 5 MG, BID
     Route: 065
     Dates: start: 20120605
  2. PEGINTRON [Concomitant]
     Active Substance: PEGINTERFERON ALFA-2B
     Indication: PLATELET COUNT INCREASED
     Dosage: 35 UG, UNK
     Route: 058
     Dates: start: 20150721
  3. RAMIPRIL PLUS [Concomitant]
     Active Substance: RAMIPRIL
     Indication: HYPERTENSION
     Dosage: 5/12.5 MG, UNK
     Route: 065
     Dates: start: 20130709
  4. FLECAINIDE [Concomitant]
     Active Substance: FLECAINIDE
     Indication: HYPERTENSION
     Dosage: 100 BID
     Route: 065
     Dates: start: 20111008
  5. BISOPROLOL [Concomitant]
     Active Substance: BISOPROLOL
     Indication: HYPERTENSION
     Dosage: 10 MG, BID
     Route: 065
     Dates: start: 20110607
  6. AMN107 [Suspect]
     Active Substance: NILOTINIB
     Indication: CHRONIC MYELOID LEUKAEMIA
     Dosage: 300 MG, BID
     Route: 048
     Dates: start: 20131023, end: 20141021
  7. FUROSEMIDE. [Concomitant]
     Active Substance: FUROSEMIDE
     Indication: OEDEMA
     Dosage: 40
     Route: 065
     Dates: start: 20130607
  8. LERCANIDIPINE [Concomitant]
     Active Substance: LERCANIDIPINE
     Indication: HYPERTENSION
     Dosage: UNK
     Route: 065
     Dates: start: 20140806
  9. AMN107 [Suspect]
     Active Substance: NILOTINIB
     Dosage: 300 MG, BID
     Route: 048
     Dates: start: 20150629, end: 20150925

REACTIONS (2)
  - Coronary artery disease [Not Recovered/Not Resolved]
  - Syncope [Recovered/Resolved]

NARRATIVE: CASE EVENT DATE: 20150925
